FAERS Safety Report 8203761-9 (Version None)
Quarter: 2012Q1

REPORT INFORMATION
  Report Type: 
  Country: None (occurrence: None)
  Receive Date: 20120308
  Receipt Date: 20120229
  Transmission Date: 20120608
  Serious: Yes (Life-Threatening, Hospitalization)
  Sender: FDA-Public Use
  Company Number: 2012SP011604

PATIENT
  Age: 50 Year
  Sex: Male

DRUGS (3)
  1. ALBUTEROL [Concomitant]
  2. BIAXIN [Concomitant]
  3. DULERA ORAL INHALATION [Suspect]
     Indication: ASTHMA
     Dosage: BID;INH
     Route: 055

REACTIONS (3)
  - ASTHMA [None]
  - CONDITION AGGRAVATED [None]
  - COUGH [None]
